FAERS Safety Report 8610234-8 (Version None)
Quarter: 2012Q3

REPORT INFORMATION
  Report Type: 
  Country: None (occurrence: None)
  Receive Date: 20120822
  Receipt Date: 20120810
  Transmission Date: 20120928
  Serious: Yes (Life-Threatening)
  Sender: FDA-Public Use
  Company Number: SI-ALVOGEN-2012AL000064

PATIENT
  Age: 87 Year
  Sex: Female

DRUGS (5)
  1. RIVASTIGIME TARTRATE [Concomitant]
     Dates: start: 20120101
  2. METOPROLOL TARTRATE [Concomitant]
     Indication: HYPERTENSION
  3. FUROSEMIDE [Concomitant]
     Indication: HYPERTENSION
  4. NITROFURANTOIN [Suspect]
     Indication: URINARY TRACT INFECTION
     Dates: start: 20120101, end: 20120101
  5. RAMIPRIL [Concomitant]
     Indication: HYPERTENSION

REACTIONS (3)
  - HYPONATRAEMIA [None]
  - CONVULSION [None]
  - POLYURIA [None]
